FAERS Safety Report 9485216 (Version 1)
Quarter: 2013Q3

REPORT INFORMATION
  Report Type: Spontaneous
  Country: US (occurrence: US)
  Receive Date: 20130828
  Receipt Date: 20130828
  Transmission Date: 20140515
  Serious: No
  Sender: FDA-Public Use
  Company Number: US-ABBOTT-13P-163-1115436-00

PATIENT
  Age: 57 Year
  Sex: Male
  Weight: 112.59 kg

DRUGS (6)
  1. ANDROGEL [Suspect]
     Indication: BLOOD TESTOSTERONE DECREASED
     Dosage: ONE PUMP DAILY
     Route: 062
     Dates: start: 20130325, end: 20130421
  2. ANDROGEL [Suspect]
     Dosage: TWO PUMPS DAILY
     Route: 062
     Dates: start: 20130422
  3. ANDROGEL [Suspect]
     Indication: BLOOD TESTOSTERONE DECREASED
     Dosage: 4 PUMPS DAILY
  4. CALCIUM WITH VITAMIN D [Concomitant]
     Indication: BONE DENSITY DECREASED
     Route: 048
  5. NIASPAN [Concomitant]
     Indication: ARTERIOSCLEROSIS
     Dosage: AT BEDTIME
     Route: 048
  6. LEVOTHYROXINE [Concomitant]
     Indication: PRODUCT USED FOR UNKNOWN INDICATION
     Route: 048

REACTIONS (12)
  - Visual acuity reduced [Unknown]
  - Drug ineffective [Unknown]
  - Back pain [Unknown]
  - Erectile dysfunction [Unknown]
  - Testicular pain [Unknown]
  - Weight increased [Unknown]
  - Fatigue [Unknown]
  - Dyspnoea [Unknown]
  - Nasal disorder [Unknown]
  - Blood cholesterol increased [Unknown]
  - Blood testosterone abnormal [Not Recovered/Not Resolved]
  - Product expiration date issue [Unknown]
